FAERS Safety Report 4930077-6 (Version None)
Quarter: 2006Q1

REPORT INFORMATION
  Report Type: 
  Country: None (occurrence: None)
  Receive Date: 20060228
  Receipt Date: 20060206
  Transmission Date: 20060701
  Serious: Yes (Other)
  Sender: FDA-Public Use
  Company Number: FR200602001217

PATIENT
  Age: 55 Year
  Sex: Female

DRUGS (2)
  1. FORTEO [Suspect]
     Dosage: 20 UG,DAILY (1/D), SUBCUTANEOUS
     Route: 058
     Dates: start: 20050501
  2. FORTEO [Concomitant]

REACTIONS (1)
  - CEREBROVASCULAR ACCIDENT [None]
